FAERS Safety Report 4979486-X (Version None)
Quarter: 2006Q2

REPORT INFORMATION
  Report Type: 
  Country: None (occurrence: None)
  Receive Date: 20060418
  Receipt Date: 20060406
  Transmission Date: 20061013
  Serious: Yes (Hospitalization, Other)
  Sender: FDA-Public Use
  Company Number: NL200511002681

PATIENT
  Age: 64 Year
  Sex: Female

DRUGS (3)
  1. ZYPREXA [Suspect]
     Dosage: SEE IMAGE
     Route: 048
     Dates: start: 20051012, end: 20051017
  2. ZYPREXA [Suspect]
     Dosage: SEE IMAGE
     Route: 048
     Dates: start: 20051018, end: 20051029
  3. ZYPREXA [Suspect]
     Dosage: SEE IMAGE
     Route: 048
     Dates: start: 20051030, end: 20051112

REACTIONS (5)
  - BLOOD PRESSURE FLUCTUATION [None]
  - BRADYCARDIA [None]
  - DIARRHOEA [None]
  - INFLUENZA [None]
  - NEUROLEPTIC MALIGNANT SYNDROME [None]
